FAERS Safety Report 9567581 (Version 2)
Quarter: 2013Q3

REPORT INFORMATION
  Report Type: Spontaneous
  Country: US (occurrence: US)
  Receive Date: 20130930
  Receipt Date: 20130930
  Transmission Date: 20140515
  Serious: No
  Sender: FDA-Public Use
  Company Number: US-AMGEN-USASP2012083137

PATIENT
  Age: 52 Year
  Sex: Female
  Weight: 72.56 kg

DRUGS (11)
  1. ENBREL [Suspect]
     Indication: RHEUMATOID ARTHRITIS
     Dosage: 50 MG, 2 TIMES/WK
     Route: 058
  2. SIMPONI [Concomitant]
     Dosage: 50 MG, UNK
     Route: 058
  3. METHOTREXATE [Concomitant]
     Dosage: 2.5 MG, UNK
     Route: 048
  4. HYDROCHLOROTHIAZIDE [Concomitant]
     Dosage: 25 MG, UNK
     Route: 048
  5. LISINOPRIL [Concomitant]
     Dosage: 10 MG, UNK
     Route: 048
  6. SIMVASTATIN [Concomitant]
     Dosage: 10 MG, UNK
     Route: 048
  7. VITAMIN D                          /00107901/ [Concomitant]
     Dosage: 50000 UNIT, UNK
     Route: 048
  8. CALCIUM [Concomitant]
     Dosage: 500 UNK, UNK
     Route: 048
  9. FOLIC ACID [Concomitant]
     Dosage: UNK
     Route: 048
  10. REMICADE [Concomitant]
     Dosage: UNK
  11. MULTIVITAMINS, PLAIN [Concomitant]
     Dosage: UNK
     Route: 048

REACTIONS (1)
  - Drug ineffective [Unknown]
